FAERS Safety Report 8582433-5 (Version None)
Quarter: 2012Q3

REPORT INFORMATION
  Report Type: 
  Country: None (occurrence: None)
  Receive Date: 20120809
  Receipt Date: 20120803
  Transmission Date: 20120928
  Serious: Yes (Hospitalization)
  Sender: FDA-Public Use
  Company Number: US-GLAXOSMITHKLINE-B0821599A

PATIENT
  Age: 53 Year
  Sex: Female

DRUGS (3)
  1. REVATIO [Concomitant]
  2. EPOPROSTENOL SODIUM [Suspect]
  3. LETAIRIS [Suspect]
     Indication: PRODUCT USED FOR UNKNOWN INDICATION
     Route: 048
     Dates: start: 20110722

REACTIONS (1)
  - ABDOMINAL DISTENSION [None]
